FAERS Safety Report 21524163 (Version 15)
Quarter: 2024Q4

REPORT INFORMATION
  Report Type: Report from Study
  Country: KR (occurrence: KR)
  Receive Date: 20221029
  Receipt Date: 20241028
  Transmission Date: 20250115
  Serious: Yes (Hospitalization)
  Sender: NOVARTIS
  Company Number: KR-NOVARTISPH-NVSC2022KR238267

PATIENT
  Age: 3 Month
  Sex: Female
  Weight: 8.2 kg

DRUGS (2)
  1. ZOLGENSMA [Suspect]
     Active Substance: ONASEMNOGENE ABEPARVOVEC-XIOI
     Indication: Spinal muscular atrophy
     Dosage: 35.8 ML, ONCE/SINGLE (VIAL)
     Route: 042
     Dates: start: 20221012, end: 20221012
  2. Godex [Concomitant]
     Indication: Product used for unknown indication
     Dosage: UNK, TID
     Route: 048
     Dates: start: 202210, end: 2024

REACTIONS (9)
  - Productive cough [Recovered/Resolved]
  - Vomiting [Recovered/Resolved]
  - Pneumonia [Recovered/Resolved]
  - Pneumonia [Recovered/Resolved]
  - Contusion [Not Recovered/Not Resolved]
  - Liver function test increased [Recovered/Resolved]
  - Cough [Recovered/Resolved]
  - Rhinorrhoea [Recovered/Resolved]
  - Liver function test increased [Recovered/Resolved]

NARRATIVE: CASE EVENT DATE: 20221001
